FAERS Safety Report 23701253 (Version 1)
Quarter: 2024Q2

REPORT INFORMATION
  Report Type: Spontaneous
  Country: US (occurrence: US)
  Receive Date: 20240403
  Receipt Date: 20240403
  Transmission Date: 20240715
  Serious: Yes (Other)
  Sender: FDA-Public Use
  Company Number: US-UPSHER-SMITH LABORATORIES, LLC-2024USL00276

PATIENT
  Age: 67 Year
  Sex: Male
  Weight: 83.447 kg

DRUGS (5)
  1. MYORISAN [Suspect]
     Active Substance: ISOTRETINOIN
     Indication: Seborrhoea
     Dosage: 40 MG, 2X/DAY
     Route: 048
     Dates: start: 20230901, end: 20240311
  2. DULOXETINE [Suspect]
     Active Substance: DULOXETINE
     Dosage: UNK
     Dates: end: 20240314
  3. ATOMOXETINE [Suspect]
     Active Substance: ATOMOXETINE\ATOMOXETINE HYDROCHLORIDE
     Dosage: UNK
     Dates: end: 20240314
  4. MEMANTINE [Suspect]
     Active Substance: MEMANTINE
     Dosage: UNK
     Dates: end: 20240314
  5. UNSPECIFIED BP MEDICATIONS [Concomitant]
     Dosage: UNK CHANGE

REACTIONS (20)
  - Fear [Recovering/Resolving]
  - Nightmare [Unknown]
  - Hallucination, auditory [Unknown]
  - Hallucination, visual [Unknown]
  - Tachyphrenia [Unknown]
  - Insomnia [Recovering/Resolving]
  - Feeling abnormal [Recovered/Resolved]
  - Migraine [Not Recovered/Not Resolved]
  - Neck pain [Recovered/Resolved]
  - Vision blurred [Recovered/Resolved]
  - Faeces discoloured [Recovered/Resolved]
  - Faeces hard [Recovered/Resolved]
  - Decreased appetite [Recovering/Resolving]
  - Heart rate increased [Recovering/Resolving]
  - Hypertension [Recovering/Resolving]
  - Abdominal discomfort [Recovered/Resolved]
  - Dysgeusia [Unknown]
  - Parosmia [Unknown]
  - Headache [Not Recovered/Not Resolved]
  - Palpitations [Unknown]

NARRATIVE: CASE EVENT DATE: 20230901
